FAERS Safety Report 6655382-7 (Version None)
Quarter: 2010Q1

REPORT INFORMATION
  Report Type: 
  Country: None (occurrence: None)
  Receive Date: 20100329
  Receipt Date: 20100322
  Transmission Date: 20100710
  Serious: Yes (Hospitalization, Other)
  Sender: FDA-Public Use
  Company Number: PHHY2009AU29659

PATIENT
  Sex: Female

DRUGS (1)
  1. CLOZARIL [Suspect]
     Dosage: 400 MG, UNK
     Dates: start: 20041104, end: 20100219

REACTIONS (7)
  - MALAISE [None]
  - MENTAL DISORDER [None]
  - PATIENT ISOLATION [None]
  - PSYCHOTIC DISORDER [None]
  - SCREAMING [None]
  - SPEECH DISORDER [None]
  - THINKING ABNORMAL [None]
